FAERS Safety Report 20796012 (Version 5)
Quarter: 2023Q1

REPORT INFORMATION
  Report Type: Report from Study
  Country: US (occurrence: None)
  Receive Date: 20220506
  Receipt Date: 20230301
  Transmission Date: 20230418
  Serious: Yes (Hospitalization)
  Sender: FDA-Public Use
  Company Number: US-Eisai Medical Research-EC-2022-112057

PATIENT
  Age: 63 Year
  Sex: Female

DRUGS (2)
  1. LENVIMA [Suspect]
     Active Substance: LENVATINIB
     Indication: Renal cancer
     Route: 048
     Dates: start: 20220308, end: 202204
  2. LENVIMA [Suspect]
     Active Substance: LENVATINIB
     Dosage: DECREASED DOSE (DOSE UNKNOWN)
     Route: 048
     Dates: start: 2022

REACTIONS (6)
  - Vomiting [Unknown]
  - Diarrhoea [Not Recovered/Not Resolved]
  - Renal failure [Unknown]
  - Blood pressure fluctuation [Unknown]
  - Hypertension [Not Recovered/Not Resolved]
  - Hypotension [Unknown]

NARRATIVE: CASE EVENT DATE: 20220101
